FAERS Safety Report 9744363 (Version 3)
Quarter: 2014Q1

REPORT INFORMATION
  Report Type: Spontaneous
  Country: US (occurrence: US)
  Receive Date: 20131210
  Receipt Date: 20140122
  Transmission Date: 20141002
  Serious: Yes (Death, Other)
  Sender: FDA-Public Use
  Company Number: US-B.I. PHARMACEUTICALS,INC./RIDGEFIELD-2013-BI-40682BP

PATIENT
  Age: 89 Year
  Sex: Male
  Weight: 82 kg

DRUGS (1)
  1. PRADAXA [Suspect]
     Indication: ATRIAL FIBRILLATION
     Dosage: 300 MG
     Dates: start: 200609, end: 200801

REACTIONS (4)
  - Oesophageal carcinoma [Fatal]
  - Constipation [Recovered/Resolved]
  - Abdominal pain [Recovered/Resolved]
  - Dysphagia [Unknown]
